FAERS Safety Report 9347479 (Version 1)
Quarter: 2013Q2

REPORT INFORMATION
  Report Type: Spontaneous
  Country: FR (occurrence: FR)
  Receive Date: 20130614
  Receipt Date: 20130614
  Transmission Date: 20140414
  Serious: Yes (Hospitalization)
  Sender: FDA-Public Use
  Company Number: FR-ABBOTT-13X-056-1103455-00

PATIENT
  Age: 69 Year
  Sex: Male
  Weight: 37 kg

DRUGS (7)
  1. MONOZECLAR [Suspect]
     Indication: UPPER RESPIRATORY TRACT INFECTION
     Dosage: AT NOON
     Route: 048
     Dates: start: 20130218, end: 20130222
  2. BETAMETHASONE [Suspect]
     Indication: UPPER RESPIRATORY TRACT INFECTION
     Dosage: ON MORNING
     Route: 048
     Dates: start: 20130218, end: 20130221
  3. HEXASPRAY [Concomitant]
     Indication: UPPER RESPIRATORY TRACT INFECTION
     Dosage: FOR FOUR TO FIVE DAYS
     Route: 048
     Dates: start: 201212
  4. BRONCHOKOD [Concomitant]
     Indication: UPPER RESPIRATORY TRACT INFECTION
     Dosage: 5% ADULT; ONE SOUP SPOON AT 12H AND L6H
     Route: 048
     Dates: start: 201212, end: 2013
  5. TRIFLUCAN [Concomitant]
     Indication: UPPER RESPIRATORY TRACT INFECTION
     Dosage: 200 MG/5 ML; ONE DOSING SPOON AT EVENING
     Route: 048
     Dates: start: 201212
  6. ESOMEPRAZOLE [Concomitant]
     Indication: PRODUCT USED FOR UNKNOWN INDICATION
     Route: 048
     Dates: start: 201212
  7. TAMSULOSIN [Concomitant]
     Indication: PRODUCT USED FOR UNKNOWN INDICATION
     Route: 048
     Dates: start: 201212

REACTIONS (6)
  - Pancreatic steatosis [Unknown]
  - Pancreatitis acute [Unknown]
  - Diarrhoea [Unknown]
  - Abdominal pain [Unknown]
  - Soft tissue disorder [Unknown]
  - Iatrogenic injury [Unknown]
